FAERS Safety Report 12624772 (Version 1)
Quarter: 2016Q3

REPORT INFORMATION
  Report Type: Spontaneous
  Country: US (occurrence: US)
  Receive Date: 20160805
  Receipt Date: 20160805
  Transmission Date: 20161109
  Serious: No
  Sender: FDA-Public Use
  Company Number: US-009507513-1608USA003000

PATIENT
  Sex: Male

DRUGS (1)
  1. BELSOMRA [Suspect]
     Active Substance: SUVOREXANT
     Indication: INSOMNIA
     Dosage: 20 MG, UNKNOWN
     Route: 048
     Dates: start: 201605, end: 201608

REACTIONS (1)
  - Euphoric mood [Unknown]

NARRATIVE: CASE EVENT DATE: 2016
